FAERS Safety Report 20430883 (Version 1)
Quarter: 2022Q1

REPORT INFORMATION
  Report Type: Spontaneous
  Country: US (occurrence: US)
  Receive Date: 20220204
  Receipt Date: 20220204
  Transmission Date: 20220423
  Serious: No
  Sender: FDA-Public Use
  Company Number: US-OYSTER POINT PHARMA, INC.-2021OYS00067

PATIENT
  Age: 88 Year
  Sex: Female

DRUGS (1)
  1. TYRVAYA [Suspect]
     Active Substance: VARENICLINE TARTRATE

REACTIONS (5)
  - COVID-19 [Recovering/Resolving]
  - Retching [Recovered/Resolved]
  - Product delivery mechanism issue [Unknown]
  - Cough [Recovered/Resolved]
  - Sneezing [Recovered/Resolved]
